FAERS Safety Report 20297822 (Version 1)
Quarter: 2022Q1

REPORT INFORMATION
  Report Type: Spontaneous
  Country: US (occurrence: None)
  Receive Date: 20220105
  Receipt Date: 20220105
  Transmission Date: 20220423
  Serious: Yes (Hospitalization)
  Sender: FDA-Public Use
  Company Number: US-ROCHE-2750764

PATIENT
  Age: 90 Year
  Sex: Male
  Weight: 80.7 kg

DRUGS (3)
  1. ACTIVASE [Suspect]
     Active Substance: ALTEPLASE
     Indication: Ischaemic stroke
     Route: 040
     Dates: start: 20210110, end: 20210110
  2. ACTIVASE [Suspect]
     Active Substance: ALTEPLASE
     Dosage: ADMINISTRATION DATE: 10-JAN-2021
     Route: 040
  3. IOHEXOL [Concomitant]
     Active Substance: IOHEXOL
     Route: 042
     Dates: start: 20210110, end: 20210110

REACTIONS (1)
  - Angioedema [Recovered/Resolved]

NARRATIVE: CASE EVENT DATE: 20210110
